FAERS Safety Report 5055101-4 (Version None)
Quarter: 2006Q2

REPORT INFORMATION
  Report Type: 
  Country: None (occurrence: None)
  Receive Date: 20060616
  Receipt Date: 20060417
  Transmission Date: 20061013
  Serious: No
  Sender: FDA-Public Use
  Company Number: 2006US000871

PATIENT
  Age: 32 Year
  Sex: Female

DRUGS (3)
  1. VESICARE [Suspect]
     Indication: POLLAKIURIA
     Dosage: 5 MG, ORAL
     Route: 048
  2. ALLEGRA-D (FEXOFENADINE) [Concomitant]
  3. FLONASE [Concomitant]

REACTIONS (1)
  - DRUG INEFFECTIVE [None]
